FAERS Safety Report 4320395-7 (Version None)
Quarter: 2004Q1

REPORT INFORMATION
  Report Type: 
  Country: None (occurrence: None)
  Receive Date: 20040317
  Receipt Date: 20040308
  Transmission Date: 20041129
  Serious: Yes (Life-Threatening, Hospitalization)
  Sender: FDA-Public Use
  Company Number: 2004201143JP

PATIENT
  Age: 34 Year
  Sex: Female

DRUGS (2)
  1. HALCION [Suspect]
     Dosage: 30 DF, SINGLE,ORAL
     Route: 048
     Dates: start: 20040221, end: 20040221
  2. SILECE (FLUNITRAZEPAM) [Suspect]
     Dosage: 30 DF, SINGLE,ORAL
     Route: 048
     Dates: start: 20040221, end: 20040221

REACTIONS (3)
  - DEPRESSED LEVEL OF CONSCIOUSNESS [None]
  - INTENTIONAL OVERDOSE [None]
  - SUICIDE ATTEMPT [None]
